FAERS Safety Report 7138806-0 (Version None)
Quarter: 2010Q4

REPORT INFORMATION
  Report Type: 
  Country: None (occurrence: None)
  Receive Date: 20101206
  Receipt Date: 20101124
  Transmission Date: 20110411
  Serious: Yes (Hospitalization, Other)
  Sender: FDA-Public Use
  Company Number: US-ELI_LILLY_AND_COMPANY-US201011007257

PATIENT
  Age: 85 Year
  Sex: Male

DRUGS (2)
  1. HUMALOG [Suspect]
     Indication: DIABETES MELLITUS
     Dates: start: 19530101, end: 20060101
  2. LANTUS [Concomitant]
     Dosage: 33 U, DAILY (1/D)

REACTIONS (2)
  - CORONARY ARTERY BYPASS [None]
  - LEG AMPUTATION [None]
